FAERS Safety Report 25472601 (Version 1)
Quarter: 2025Q2

REPORT INFORMATION
  Report Type: Other
  Country: FR (occurrence: FR)
  Receive Date: 20250624
  Receipt Date: 20250624
  Transmission Date: 20250717
  Serious: Yes (Disabling)
  Sender: ZYDUS PHARM
  Company Number: None

PATIENT

DRUGS (7)
  1. TADALAFIL [Suspect]
     Active Substance: TADALAFIL
     Indication: Pulmonary arterial hypertension
     Route: 048
     Dates: start: 20221222, end: 20240112
  2. TADALAFIL [Suspect]
     Active Substance: TADALAFIL
     Route: 048
     Dates: start: 20240301
  3. AMBRISENTAN [Suspect]
     Active Substance: AMBRISENTAN
     Indication: Pulmonary arterial hypertension
     Route: 048
     Dates: start: 20221222
  4. ATORVASTATIN [Concomitant]
     Active Substance: ATORVASTATIN
     Indication: Dyslipidaemia
     Route: 048
  5. FUROSEMIDE [Concomitant]
     Active Substance: FUROSEMIDE
     Indication: Pulmonary arterial hypertension
     Route: 048
     Dates: start: 20221222
  6. LEVOTHYROXINE [Concomitant]
     Active Substance: LEVOTHYROXINE
     Indication: Hypothyroidism
     Route: 048
  7. NERISONE [Concomitant]
     Active Substance: DIFLUCORTOLONE VALERATE
     Indication: Pruritus
     Route: 003
     Dates: start: 20240111

REACTIONS (1)
  - Glaucoma [Recovered/Resolved with Sequelae]

NARRATIVE: CASE EVENT DATE: 20240401
